FAERS Safety Report 24465986 (Version 1)
Quarter: 2024Q4

REPORT INFORMATION
  Report Type: Spontaneous
  Country: US (occurrence: US)
  Receive Date: 20241018
  Receipt Date: 20241018
  Transmission Date: 20250115
  Serious: No
  Sender: ROCHE
  Company Number: US-ROCHE-3535023

PATIENT
  Sex: Female

DRUGS (2)
  1. XOLAIR [Suspect]
     Active Substance: OMALIZUMAB
     Indication: Idiopathic urticaria
     Dosage: 150 MG/ML
     Route: 058
     Dates: start: 202308
  2. XOLAIR [Suspect]
     Active Substance: OMALIZUMAB
     Indication: Urticaria

REACTIONS (9)
  - Menstrual disorder [Unknown]
  - Arthralgia [Unknown]
  - Abdominal distension [Unknown]
  - Inflammation [Unknown]
  - Menstruation irregular [Unknown]
  - Product administered at inappropriate site [Unknown]
  - Mastocytosis [Unknown]
  - Postural orthostatic tachycardia syndrome [Unknown]
  - Idiopathic urticaria [Unknown]
